FAERS Safety Report 21610976 (Version 1)
Quarter: 2022Q4

REPORT INFORMATION
  Report Type: Spontaneous
  Country: DE (occurrence: DE)
  Receive Date: 20221117
  Receipt Date: 20221117
  Transmission Date: 20230113
  Serious: Yes (Hospitalization)
  Sender: FDA-Public Use
  Company Number: DE-ADRED-08223-01

PATIENT
  Age: 63 Year
  Sex: Male

DRUGS (14)
  1. TORSEMIDE [Suspect]
     Active Substance: TORSEMIDE
     Indication: Product used for unknown indication
     Dosage: 50 MILLIGRAM, QD (50 MG, 1-0-0-0)
     Route: 048
  2. XIPAMIDE [Suspect]
     Active Substance: XIPAMIDE
     Indication: Product used for unknown indication
     Dosage: 10 MILLIGRAM, QD (10 MG, 0-1-0-0)
     Route: 048
  3. POTASSIUM CITRATE [Concomitant]
     Active Substance: POTASSIUM CITRATE
     Dosage: 1-0-0-0
     Route: 048
  4. ATORVASTATIN [Concomitant]
     Active Substance: ATORVASTATIN
     Dosage: 40 MILLIGRAM, QD (40 MG, 0-0-1-0)
     Route: 048
  5. OBSTINOL M [Concomitant]
     Dosage: 20 MILLILITER (20 ML, 1-1-1-1)
     Route: 048
  6. ACTRAPID [Concomitant]
     Active Substance: INSULIN HUMAN
     Dosage: 100 IU/ML, READY-TO-USE PEN,BY REGIMEN
     Route: 058
  7. Vigantol [Concomitant]
     Dosage: 1000 INTERNATIONAL UNIT, QD (1000 IU, 1-0-0-0)
     Route: 048
  8. ASPIRIN [Concomitant]
     Active Substance: ASPIRIN
     Dosage: 100 MILLIGRAM, QD (100 MG, 1-0-0-0)
     Route: 048
  9. EDOXABAN [Concomitant]
     Active Substance: EDOXABAN
     Dosage: 60 MILLIGRAM, QD (60 MG, 1-0-0-0)
     Route: 048
  10. LANTUS [Concomitant]
     Active Substance: INSULIN GLARGINE
     Dosage: 100 IU/ML, 0-0-0-22
     Route: 058
  11. LEVOTHYROXINE SODIUM [Concomitant]
     Active Substance: LEVOTHYROXINE SODIUM
     Dosage: 75 MICROGRAM, QD (75 MCG, 1-0-0-0)
     Route: 048
  12. BISOPROLOL [Concomitant]
     Active Substance: BISOPROLOL
     Dosage: 5 MILLIGRAM, QD (5 MG, 1-0-0-0)
     Route: 048
  13. AMIODARONE [Concomitant]
     Active Substance: AMIODARONE
     Dosage: 200 MILLIGRAM, QD (200 MG, 1-0-0-0)
     Route: 048
  14. PANTOPRAZOLE SODIUM [Concomitant]
     Active Substance: PANTOPRAZOLE SODIUM
     Dosage: 40 MILLIGRAM, QD (40 MG, 1-0-0-0)
     Route: 048

REACTIONS (6)
  - Abdominal pain [Unknown]
  - Vomiting [Unknown]
  - Nausea [Unknown]
  - Salivary hypersecretion [Unknown]
  - Haematoma [Unknown]
  - Syncope [Unknown]
